FAERS Safety Report 9460493 (Version 2)
Quarter: 2013Q3

REPORT INFORMATION
  Report Type: Spontaneous
  Country: US (occurrence: US)
  Receive Date: 20130815
  Receipt Date: 20130830
  Transmission Date: 20140515
  Serious: Yes (Other)
  Sender: FDA-Public Use
  Company Number: CHPA2013US012677

PATIENT
  Age: 50 Year
  Sex: Female

DRUGS (3)
  1. EXCEDRIN EXTRA STRENGTH [Suspect]
     Indication: NARCOLEPSY
     Dosage: UNK, QD
     Route: 048
  2. EXCEDRIN EXTRA STRENGTH [Suspect]
     Indication: ARTHRITIS
  3. POTASSIUM [Concomitant]
     Dosage: UNK, QD

REACTIONS (15)
  - Narcolepsy [Recovering/Resolving]
  - Hypertension [Recovering/Resolving]
  - Autoimmune thyroiditis [Not Recovered/Not Resolved]
  - Hypothyroidism [Recovering/Resolving]
  - Eczema [Recovering/Resolving]
  - Attention deficit/hyperactivity disorder [Not Recovered/Not Resolved]
  - Osteoarthritis [Not Recovered/Not Resolved]
  - Menopausal depression [Recovering/Resolving]
  - Menopause [Recovered/Resolved]
  - Gastrooesophageal reflux disease [Recovering/Resolving]
  - Blood cholesterol increased [Recovering/Resolving]
  - Migraine [Not Recovered/Not Resolved]
  - Dry mouth [Recovering/Resolving]
  - Asthma [Not Recovered/Not Resolved]
  - Off label use [Unknown]
